FAERS Safety Report 20356464 (Version 1)
Quarter: 2022Q1

REPORT INFORMATION
  Report Type: Spontaneous
  Country: US (occurrence: None)
  Receive Date: 20220120
  Receipt Date: 20220120
  Transmission Date: 20220423
  Serious: No
  Sender: FDA-Public Use
  Company Number: None

PATIENT

DRUGS (1)
  1. XELJANZ XR [Suspect]
     Active Substance: TOFACITINIB CITRATE
     Indication: Rheumatoid arthritis
     Dosage: 11MG DAILY PO
     Route: 048
     Dates: start: 20211022

REACTIONS (6)
  - Joint swelling [None]
  - Arthralgia [None]
  - Condition aggravated [None]
  - Abdominal pain upper [None]
  - Vomiting [None]
  - Recalled product administered [None]
